FAERS Safety Report 5475516-X (Version None)
Quarter: 2007Q4

REPORT INFORMATION
  Report Type: 
  Country: None (occurrence: None)
  Receive Date: 20071001
  Receipt Date: 20070919
  Transmission Date: 20080405
  Serious: Yes (Other)
  Sender: FDA-Public Use
  Company Number: SPV1-2007-04210

PATIENT
  Age: 9 Year
  Sex: Female
  Weight: 27.7 kg

DRUGS (2)
  1. DAYTRANA [Suspect]
     Indication: ATTENTION DEFICIT/HYPERACTIVITY DISORDER
     Dosage: 10 MG, 1X/DAY:QD, TRANSDERMAL
     Route: 062
     Dates: start: 20070823, end: 20070919
  2. PROZAC [Concomitant]

REACTIONS (1)
  - GRAND MAL CONVULSION [None]
